FAERS Safety Report 18546306 (Version 2)
Quarter: 2020Q4

REPORT INFORMATION
  Report Type: Spontaneous
  Country: US (occurrence: US)
  Receive Date: 20201125
  Receipt Date: 20201211
  Transmission Date: 20210114
  Serious: No
  Sender: FDA-Public Use
  Company Number: US-PFIZER INC-2020463503

PATIENT
  Age: 62 Year
  Sex: Female

DRUGS (1)
  1. LYRICA [Suspect]
     Active Substance: PREGABALIN
     Indication: ESSENTIAL HYPERTENSION
     Dosage: 75 MG, 2X/DAY (TAKE 1 CAPSULE(S) TWICE A DAY BY ORAL ROUTE FOR 90 DAYS)
     Route: 048

REACTIONS (2)
  - Off label use [Unknown]
  - Feeling abnormal [Unknown]
